FAERS Safety Report 5356832-9 (Version None)
Quarter: 2007Q2

REPORT INFORMATION
  Report Type: 
  Country: None (occurrence: None)
  Receive Date: 20070614
  Receipt Date: 20061208
  Transmission Date: 20071010
  Serious: No
  Sender: FDA-Public Use
  Company Number: US-ASTRAZENECA-2006UW27298

PATIENT
  Age: 66 Year
  Sex: Female
  Weight: 59 kg

DRUGS (4)
  1. ATACAND [Suspect]
     Indication: AORTIC VALVE DISEASE
     Route: 048
     Dates: start: 20061129
  2. GLAUCOMA MEDS [Concomitant]
  3. FOLIC ACID [Concomitant]
  4. FOSAMAX [Concomitant]

REACTIONS (2)
  - FATIGUE [None]
  - MALAISE [None]
